FAERS Safety Report 13865785 (Version 1)
Quarter: 2017Q3

REPORT INFORMATION
  Report Type: Spontaneous
  Country: US (occurrence: US)
  Receive Date: 20170814
  Receipt Date: 20170814
  Transmission Date: 20171127
  Serious: No
  Sender: FDA-Public Use
  Company Number: US-ROCHE-668109

PATIENT
  Age: 15 Year
  Sex: Female
  Weight: 50.8 kg

DRUGS (2)
  1. TAMIFLU [Suspect]
     Active Substance: OSELTAMIVIR PHOSPHATE
     Indication: H1N1 INFLUENZA
     Route: 065
  2. TYLENOL EXTRA STRENGTH [Suspect]
     Active Substance: ACETAMINOPHEN
     Indication: H1N1 INFLUENZA
     Dosage: DRUG NAME: EXTRA STRENGTRH TYLENOL RAPID RELEASE GELCAPS
     Route: 048

REACTIONS (1)
  - Pyrexia [Unknown]
